FAERS Safety Report 9230200 (Version 2)
Quarter: 2013Q2

REPORT INFORMATION
  Report Type: Spontaneous
  Country: US (occurrence: None)
  Receive Date: 20130411
  Receipt Date: 20130510
  Transmission Date: 20140414
  Serious: Yes (Hospitalization)
  Sender: FDA-Public Use
  Company Number: JPI-P-030932

PATIENT
  Age: 56 Year
  Sex: Female
  Weight: 59.88 kg

DRUGS (22)
  1. FLUVOXAMINE MALEATE [Suspect]
     Indication: DEPRESSION
     Route: 048
     Dates: start: 20121221
  2. TERIPARATIDE [Concomitant]
  3. PANTOPRAZOLE [Concomitant]
  4. ONDANSETRON [Concomitant]
  5. MOMETASONE INHALATION [Concomitant]
  6. LIDOCAINE [Concomitant]
  7. HYOSCYAMINE [Concomitant]
  8. FERROUS GLUCONATE [Concomitant]
  9. DIPHENOXYLATE ATROPINE [Concomitant]
  10. COLESEVELAM [Concomitant]
  11. TRAZODONE [Concomitant]
  12. SUCRALFATE [Concomitant]
  13. PREGABALIN [Concomitant]
  14. MULTIVITAMINS [Concomitant]
  15. METHYLCELLULOSE [Concomitant]
  16. DICLOFENEC [Concomitant]
  17. CLONAZEPAM [Concomitant]
  18. CHOECALCIFEROL [Concomitant]
  19. CALCIUM AND VITAMIN D [Concomitant]
  20. ALBUTEROL INHALATION [Concomitant]
  21. OUTPATIENT COMPOUNDS (TRIAM 0.1% OINTMENT) [Concomitant]
  22. ESTRONE (SUPPOSITORY) [Concomitant]

REACTIONS (9)
  - Heart rate irregular [None]
  - Oxygen saturation decreased [None]
  - Hypotension [None]
  - Abdominal pain upper [None]
  - Nausea [None]
  - Diarrhoea [None]
  - Fatigue [None]
  - Somnolence [None]
  - Apathy [None]
